FAERS Safety Report 19154257 (Version 1)
Quarter: 2021Q2

REPORT INFORMATION
  Report Type: Spontaneous
  Country: US (occurrence: US)
  Receive Date: 20210419
  Receipt Date: 20210419
  Transmission Date: 20210717
  Serious: No
  Sender: FDA-Public Use
  Company Number: US-TEVA-2021-US-1901154

PATIENT
  Age: 23 Year
  Sex: Male

DRUGS (1)
  1. LEVOCETIRIZINE DIHYDROCHLORIDE. [Suspect]
     Active Substance: LEVOCETIRIZINE DIHYDROCHLORIDE
     Route: 065

REACTIONS (14)
  - Abdominal distension [Unknown]
  - Agitation [Unknown]
  - Insomnia [Unknown]
  - Gastrointestinal disorder [Unknown]
  - Frequent bowel movements [Unknown]
  - Flatulence [Unknown]
  - Malaise [Unknown]
  - Illness [Unknown]
  - Diarrhoea [Unknown]
  - Eructation [Unknown]
  - Allergic reaction to excipient [Unknown]
  - Irritability [Unknown]
  - Pain [Unknown]
  - Headache [Unknown]
